FAERS Safety Report 4396293-X (Version None)
Quarter: 2004Q3

REPORT INFORMATION
  Report Type: 
  Country: None (occurrence: None)
  Receive Date: 20040708
  Receipt Date: 20040702
  Transmission Date: 20050211
  Serious: Yes (Hospitalization)
  Sender: FDA-Public Use
  Company Number: LTI2004A00153

PATIENT
  Age: 72 Year
  Sex: Male

DRUGS (2)
  1. LEUPROLIDE ACETATE [Suspect]
     Indication: PROSTATE CANCER
     Dosage: 11.25 MG, 1 IN 3 M
     Route: 058
     Dates: start: 20031031
  2. FLUTAMIDE [Concomitant]

REACTIONS (1)
  - LARYNGEAL CANCER [None]
